FAERS Safety Report 21929000 (Version 4)
Quarter: 2024Q2

REPORT INFORMATION
  Report Type: Spontaneous
  Country: PT (occurrence: PT)
  Receive Date: 20230131
  Receipt Date: 20240605
  Transmission Date: 20240715
  Serious: Yes (Other)
  Sender: FDA-Public Use
  Company Number: PT-ASPEN-GLO2023PT000132

PATIENT
  Age: 31 Year
  Sex: Female

DRUGS (7)
  1. ROPIVACAINE HYDROCHLORIDE [Suspect]
     Active Substance: ROPIVACAINE HYDROCHLORIDE
     Indication: Anaesthesia
     Dosage: 3 MILLIGRAM
     Route: 008
  2. ROPIVACAINE [Suspect]
     Active Substance: ROPIVACAINE
     Indication: Epidural anaesthesia
     Dosage: 3 MILLIGRAM,. 3MG(1.5ML) ROPI 0.2%, 4X 8ML ROPI 0.2% AND 97.5MG(13ML) ROPI 0.75%
     Route: 008
  3. ROPIVACAINE [Suspect]
     Active Substance: ROPIVACAINE
     Indication: Caesarean section
     Dosage: 97.5 MILLIGRAM,(13 ML) OF 0.75%
     Route: 008
  4. ROPIVACAINE [Suspect]
     Active Substance: ROPIVACAINE
     Indication: Anaesthesia
     Dosage: 8 MILLILITER, TWO TIMES A DAY,AFTER 12 HOURS 4X 8ML OF 0.2%
     Route: 008
  5. SUFENTANIL [Suspect]
     Active Substance: SUFENTANIL
     Indication: Analgesic therapy
     Dosage: 2.5 MICROGRAM,(0.5 ML)
     Route: 037
  6. SUFENTANIL [Suspect]
     Active Substance: SUFENTANIL
     Indication: Epidural analgesia
     Dosage: 10 MICROGRAM (AFTER 12 HOURS THE FIRST 3 WITH 2 ML(10 ?G))
     Route: 037
  7. SUFENTANIL [Suspect]
     Active Substance: SUFENTANIL
     Indication: Anaesthesia
     Dosage: 2 MILLILITER (AFTER 12 HOURS, 4 REPEAT INJECTIONS 8ML ROPIVACAINE 0.2% EACH, FIRST 3 WITH 2ML (10 ?G
     Route: 065

REACTIONS (8)
  - Horner^s syndrome [Recovered/Resolved]
  - Paraesthesia [Recovered/Resolved]
  - Conjunctival hyperaemia [Recovered/Resolved]
  - Asthenia [Recovered/Resolved]
  - Enophthalmos [Recovered/Resolved]
  - Anisocoria [Recovered/Resolved]
  - Eyelid ptosis [Recovered/Resolved]
  - Miosis [Recovered/Resolved]
